APPROVED DRUG PRODUCT: RESERPINE AND HYDROFLUMETHIAZIDE
Active Ingredient: HYDROFLUMETHIAZIDE; RESERPINE
Strength: 50MG;0.125MG
Dosage Form/Route: TABLET;ORAL
Application: A088932 | Product #001
Applicant: IVAX PHARMACEUTICALS INC
Approved: Jan 11, 1985 | RLD: No | RS: No | Type: DISCN